FAERS Safety Report 16057057 (Version 1)
Quarter: 2019Q2

REPORT INFORMATION
  Report Type: Spontaneous
  Country: US (occurrence: US)
  Receive Date: 20190311
  Receipt Date: 20190311
  Transmission Date: 20190711
  Serious: Yes (Hospitalization)
  Sender: FDA-Public Use
  Company Number: None

PATIENT
  Age: 42 Year
  Sex: Male

DRUGS (14)
  1. CYCLOSPORIDINE [Concomitant]
  2. LORATADINE. [Concomitant]
     Active Substance: LORATADINE
  3. MYCOPHENOLATE [Concomitant]
     Active Substance: MYCOPHENOLIC ACID
  4. URSODIOL. [Concomitant]
     Active Substance: URSODIOL
  5. GRANIX [Suspect]
     Active Substance: TBO-FILGRASTIM
     Indication: RESPIRATORY DISORDER
     Route: 058
     Dates: start: 20181210
  6. CRESEMBA [Concomitant]
     Active Substance: ISAVUCONAZONIUM SULFATE
  7. VELACYCLOVIR [Concomitant]
  8. ONDANESTRON [Concomitant]
  9. ISONIAZID. [Concomitant]
     Active Substance: ISONIAZID
  10. VITAMIN B-6 [Concomitant]
     Active Substance: PYRIDOXINE
  11. POT CHLORIDE [Concomitant]
     Active Substance: POTASSIUM CHLORIDE
  12. FOLBIC [Concomitant]
     Active Substance: CYANOCOBALAMIN\FOLIC ACID\PYRIDOXINE
  13. LEVOFLOXACIN. [Concomitant]
     Active Substance: LEVOFLOXACIN
  14. LEVETIRACETA [Concomitant]

REACTIONS (2)
  - Hospitalisation [None]
  - Therapy cessation [None]

NARRATIVE: CASE EVENT DATE: 20190228
